FAERS Safety Report 5934558-8 (Version None)
Quarter: 2008Q4

REPORT INFORMATION
  Report Type: 
  Country: None (occurrence: None)
  Receive Date: 20081029
  Receipt Date: 20081021
  Transmission Date: 20090506
  Serious: Yes (Hospitalization)
  Sender: FDA-Public Use
  Company Number: DE-BAYER-200826230GPV

PATIENT
  Age: 88 Year
  Sex: Female
  Weight: 50 kg

DRUGS (8)
  1. ASPIRIN [Suspect]
     Indication: PERIPHERAL ARTERIAL OCCLUSIVE DISEASE
     Route: 048
  2. ISMN 20 / ISOSORBIDMONONITRAT [Concomitant]
     Indication: DRUG USE FOR UNKNOWN INDICATION
  3. GINGIUM/ GINGKO [Concomitant]
     Indication: DRUG USE FOR UNKNOWN INDICATION
  4. CARMEN/LERCANIDIPIN [Concomitant]
     Indication: DRUG USE FOR UNKNOWN INDICATION
  5. LEVODOPA COMP/LEVODOPA, CARBIDOPA [Concomitant]
     Indication: DRUG USE FOR UNKNOWN INDICATION
  6. NEBILET/ NEBIVOLOL [Concomitant]
     Indication: DRUG USE FOR UNKNOWN INDICATION
  7. FUROSEMID [Concomitant]
     Indication: DRUG USE FOR UNKNOWN INDICATION
  8. DOXACOR / DOXAZOSIN [Concomitant]
     Indication: DRUG USE FOR UNKNOWN INDICATION

REACTIONS (3)
  - HAEMATOCHEZIA [None]
  - LARGE INTESTINAL HAEMORRHAGE [None]
  - LOWER GASTROINTESTINAL HAEMORRHAGE [None]
